FAERS Safety Report 7909319-0 (Version None)
Quarter: 2011Q4

REPORT INFORMATION
  Report Type: 
  Country: None (occurrence: None)
  Receive Date: 20111111
  Receipt Date: 20111102
  Transmission Date: 20120403
  Serious: Yes (Hospitalization, Other)
  Sender: FDA-Public Use
  Company Number: FR-UCBSA-043191

PATIENT
  Age: 70 Year
  Sex: Male

DRUGS (8)
  1. TRIMEPRAZINE TARTRATE [Concomitant]
     Dosage: 0.5 UNIT
     Route: 048
  2. CLOPIDOGREL [Concomitant]
     Route: 048
  3. TEGRETOL [Concomitant]
     Dosage: 400 MG
     Route: 048
  4. SOTALOL HCL [Concomitant]
     Dosage: 160 MG
     Route: 048
     Dates: end: 20111001
  5. KEPPRA [Suspect]
     Indication: ELECTROENCEPHALOGRAM ABNORMAL
     Route: 048
     Dates: start: 20110701
  6. TERCIAN [Concomitant]
     Dosage: 25 MG IN THE EVENING
     Route: 048
  7. ASPEGIC 325 [Concomitant]
  8. EZETIMIBE [Concomitant]
     Route: 048

REACTIONS (1)
  - ATRIAL FLUTTER [None]
